FAERS Safety Report 9083825 (Version 1)
Quarter: 2013Q1

REPORT INFORMATION
  Report Type: Report from Study
  Country: US (occurrence: US)
  Receive Date: 20130131
  Receipt Date: 20130131
  Transmission Date: 20140127
  Serious: No
  Sender: FDA-Public Use
  Company Number: US-ABBOTT-12P-163-0991663-00

PATIENT
  Age: 33 Year
  Sex: Female

DRUGS (4)
  1. HUMIRA [Suspect]
     Indication: PSORIASIS
     Dates: start: 20120809, end: 20120913
  2. CITALOPRAM [Concomitant]
     Indication: DEPRESSION
     Dosage: 40MG DAILY
  3. CITALOPRAM [Concomitant]
     Indication: ANXIETY
  4. MICROGESTIN [Concomitant]
     Indication: HORMONE REPLACEMENT THERAPY
     Dosage: 1/20

REACTIONS (1)
  - Nasopharyngitis [Recovered/Resolved]
